FAERS Safety Report 4782500-8 (Version None)
Quarter: 2005Q3

REPORT INFORMATION
  Report Type: 
  Country: None (occurrence: None)
  Receive Date: 20050929
  Receipt Date: 20050111
  Transmission Date: 20060218
  Serious: No
  Sender: FDA-Public Use
  Company Number: 395917

PATIENT

DRUGS (2)
  1. COREG [Suspect]
     Indication: DRUG USE FOR UNKNOWN INDICATION
  2. COFFEE [Suspect]
     Indication: DRUG USE FOR UNKNOWN INDICATION
     Route: 048

REACTIONS (2)
  - FOOD INTERACTION [None]
  - HEADACHE [None]
